FAERS Safety Report 7526233-3 (Version None)
Quarter: 2011Q2

REPORT INFORMATION
  Report Type: 
  Country: None (occurrence: None)
  Receive Date: 20110603
  Receipt Date: 20110603
  Transmission Date: 20111010
  Serious: Yes (Hospitalization)
  Sender: FDA-Public Use
  Company Number: None

PATIENT
  Age: 40 Year
  Sex: Female

DRUGS (1)
  1. GEODON [Suspect]
     Dosage: 17

REACTIONS (8)
  - SUICIDE ATTEMPT [None]
  - SELF-MEDICATION [None]
  - ALCOHOL USE [None]
  - INCORRECT DOSE ADMINISTERED [None]
  - BLOOD GLUCOSE INCREASED [None]
  - BLOOD POTASSIUM DECREASED [None]
  - ELECTROCARDIOGRAM QT PROLONGED [None]
  - POISONING [None]
